FAERS Safety Report 13226113 (Version 2)
Quarter: 2017Q1

REPORT INFORMATION
  Report Type: Spontaneous
  Country: CA (occurrence: CA)
  Receive Date: 20170213
  Receipt Date: 20170222
  Transmission Date: 20170428
  Serious: Yes (Other)
  Sender: FDA-Public Use
  Company Number: CA-ASTELLAS-2017US004861

PATIENT
  Age: 13 Month
  Sex: Male

DRUGS (1)
  1. TACROLIMUS. [Suspect]
     Active Substance: TACROLIMUS
     Indication: NEPHROTIC SYNDROME
     Dosage: UNK UNK, UNKNOWN FREQ.
     Route: 065

REACTIONS (9)
  - Vasculitis [Recovering/Resolving]
  - Idiosyncratic drug reaction [Recovering/Resolving]
  - Polyserositis [Unknown]
  - Pleural effusion [Recovering/Resolving]
  - Off label use [Unknown]
  - Failure to thrive [Recovering/Resolving]
  - Ascites [Unknown]
  - Gastroenteritis eosinophilic [Recovering/Resolving]
  - Pericardial effusion [Recovering/Resolving]
